APPROVED DRUG PRODUCT: NOLVADEX
Active Ingredient: TAMOXIFEN CITRATE
Strength: EQ 10MG BASE **Federal Register determination that product was not discontinued or withdrawn for safety or effectiveness reasons**
Dosage Form/Route: TABLET;ORAL
Application: N017970 | Product #001
Applicant: ASTRAZENECA PHARMACEUTICALS LP
Approved: Approved Prior to Jan 1, 1982 | RLD: Yes | RS: No | Type: DISCN